FAERS Safety Report 5465657-5 (Version None)
Quarter: 2007Q3

REPORT INFORMATION
  Report Type: 
  Country: None (occurrence: None)
  Receive Date: 20070919
  Receipt Date: 20070919
  Transmission Date: 20080115
  Serious: Yes (Other)
  Sender: FDA-Public Use
  Company Number: None

PATIENT
  Age: 59 Year
  Sex: Female

DRUGS (1)
  1. CLIMARA [Suspect]
     Indication: HORMONE REPLACEMENT THERAPY
     Dosage: APPLY ONE PATCH WEEKLY
     Route: 062
     Dates: start: 20020101

REACTIONS (1)
  - PHARMACEUTICAL PRODUCT COMPLAINT [None]
